FAERS Safety Report 16201683 (Version 1)
Quarter: 2019Q2

REPORT INFORMATION
  Report Type: Spontaneous
  Country: US (occurrence: US)
  Receive Date: 20190415
  Receipt Date: 20190415
  Transmission Date: 20190711
  Serious: Yes (Life-Threatening, Hospitalization, Disabling, Other)
  Sender: FDA-Public Use
  Company Number: None

PATIENT
  Age: 36 Year
  Sex: Female
  Weight: 55.8 kg

DRUGS (1)
  1. AZITHROMYCIN TABLETS, USP [Suspect]
     Active Substance: AZITHROMYCIN
     Indication: NASOPHARYNGITIS
     Dosage: ?          QUANTITY:1 TABLET(S);?
     Route: 048
     Dates: start: 20181210, end: 20181212

REACTIONS (11)
  - Fall [None]
  - Peripheral sensory neuropathy [None]
  - Polyneuropathy [None]
  - Paraesthesia [None]
  - Panic attack [None]
  - Pruritus [None]
  - Cardiovascular disorder [None]
  - Urticaria [None]
  - Hypoaesthesia [None]
  - Quadriplegia [None]
  - Loss of proprioception [None]

NARRATIVE: CASE EVENT DATE: 20181212
